FAERS Safety Report 19554465 (Version 1)
Quarter: 2021Q3

REPORT INFORMATION
  Report Type: Spontaneous
  Country: IE (occurrence: IE)
  Receive Date: 20210714
  Receipt Date: 20210714
  Transmission Date: 20211014
  Serious: Yes (Hospitalization)
  Sender: FDA-Public Use
  Company Number: IE-BAXTER-2021BAX020442

PATIENT
  Age: 76 Year
  Sex: Male

DRUGS (2)
  1. FLUCLOXACILLIN [Suspect]
     Active Substance: FLUCLOXACILLIN
     Indication: PRODUCT USED FOR UNKNOWN INDICATION
     Dosage: CI GIVEN OD OVER 23 HOURS
     Route: 042
  2. SODIUM CHLORIDE 0.9% INTRAVENOUS INFUSION BP [Suspect]
     Active Substance: SODIUM CHLORIDE
     Indication: MEDICATION DILUTION
     Dosage: CI GIVEN OD OVER 23 HOURS
     Route: 042

REACTIONS (2)
  - Haematemesis [Unknown]
  - Melaena [Unknown]

NARRATIVE: CASE EVENT DATE: 20210703
